FAERS Safety Report 11040083 (Version 1)
Quarter: 2015Q2

REPORT INFORMATION
  Report Type: Spontaneous
  Country: IT (occurrence: IT)
  Receive Date: 20150416
  Receipt Date: 20150416
  Transmission Date: 20150821
  Serious: Yes (Hospitalization)
  Sender: FDA-Public Use
  Company Number: PHHY2015IT042765

PATIENT
  Age: 51 Year
  Sex: Female

DRUGS (2)
  1. VALPROATE SODIUM. [Suspect]
     Active Substance: VALPROATE SODIUM
     Indication: BIPOLAR DISORDER
  2. VALPROATE SODIUM. [Suspect]
     Active Substance: VALPROATE SODIUM
     Indication: DEPRESSION
     Dosage: 1000 MG, QD
     Route: 065
     Dates: start: 2008

REACTIONS (3)
  - Pulmonary alveolar haemorrhage [Recovered/Resolved]
  - Anaemia [Recovered/Resolved]
  - Haemoptysis [Recovered/Resolved]
